FAERS Safety Report 4267876-2 (Version None)
Quarter: 2004Q1

REPORT INFORMATION
  Report Type: 
  Country: None (occurrence: None)
  Receive Date: 20040109
  Receipt Date: 20040107
  Transmission Date: 20041129
  Serious: Yes (Hospitalization)
  Sender: FDA-Public Use
  Company Number: US-GLAXOSMITHKLINE-A0491902A

PATIENT
  Age: 50 Year
  Sex: Female

DRUGS (10)
  1. PAXIL [Suspect]
     Indication: ANXIETY
     Dosage: 1TAB SINGLE DOSE
     Route: 048
     Dates: start: 19940101, end: 19940101
  2. ADVAIR DISKUS 250/50 [Suspect]
     Indication: CHRONIC OBSTRUCTIVE AIRWAYS DISEASE
     Dosage: 1PUFF TWICE PER DAY
     Route: 055
     Dates: start: 20030301, end: 20030901
  3. XANAX [Concomitant]
  4. PREMARIN [Concomitant]
  5. MECLIZINE [Concomitant]
  6. ASPIRIN [Concomitant]
  7. ALBUTEROL [Concomitant]
  8. ACIPHEX [Concomitant]
  9. RANITIDINE [Concomitant]
  10. COMBIVENT [Concomitant]

REACTIONS (4)
  - APHONIA [None]
  - HEART RATE ABNORMAL [None]
  - HEART RATE IRREGULAR [None]
  - LARYNGITIS [None]
